FAERS Safety Report 21753434 (Version 5)
Quarter: 2023Q1

REPORT INFORMATION
  Report Type: Spontaneous
  Country: US (occurrence: US)
  Receive Date: 20221220
  Receipt Date: 20230320
  Transmission Date: 20230417
  Serious: Yes (Hospitalization, Other)
  Sender: FDA-Public Use
  Company Number: US-BEH-2022153317

PATIENT
  Age: 55 Year
  Sex: Female
  Weight: 107.94 kg

DRUGS (5)
  1. HAEGARDA [Suspect]
     Active Substance: HUMAN C1-ESTERASE INHIBITOR
     Indication: Hereditary angioedema
     Dosage: 6500 INTERNATIONAL UNIT
     Route: 058
  2. HAEGARDA [Suspect]
     Active Substance: HUMAN C1-ESTERASE INHIBITOR
     Indication: Prophylaxis
     Dosage: 6500 INTERNATIONAL UNIT, BIW
     Route: 058
  3. HAEGARDA [Suspect]
     Active Substance: HUMAN C1-ESTERASE INHIBITOR
     Dosage: 6500 INTERNATIONAL UNIT/KILOGRAM, BIW
     Route: 058
  4. HAEGARDA [Suspect]
     Active Substance: HUMAN C1-ESTERASE INHIBITOR
     Indication: Prophylaxis
     Dosage: 6500 INTERNATIONAL UNIT, BIW
     Route: 058
     Dates: start: 20220213
  5. HAEGARDA [Suspect]
     Active Substance: HUMAN C1-ESTERASE INHIBITOR
     Dosage: UNK
     Route: 058

REACTIONS (12)
  - Hereditary angioedema [Not Recovered/Not Resolved]
  - Gastrointestinal pain [Not Recovered/Not Resolved]
  - Stress [Unknown]
  - Vomiting [Not Recovered/Not Resolved]
  - Abdominal pain upper [Recovering/Resolving]
  - Feeding disorder [Recovering/Resolving]
  - Memory impairment [Unknown]
  - Hereditary angioedema [Unknown]
  - Hereditary angioedema [Unknown]
  - Nausea [Unknown]
  - Pain [Unknown]
  - Stress [Unknown]

NARRATIVE: CASE EVENT DATE: 20221201
